FAERS Safety Report 8620263-6 (Version None)
Quarter: 2012Q3

REPORT INFORMATION
  Report Type: 
  Country: None (occurrence: None)
  Receive Date: 20120817
  Receipt Date: 20120817
  Transmission Date: 20120928
  Serious: No
  Sender: FDA-Public Use
  Company Number: None

PATIENT
  Sex: Male

DRUGS (1)
  1. EGRIFTA [Suspect]
     Indication: LIPODYSTROPHY ACQUIRED
     Dosage: 2 MG, DAILY, SC
     Route: 058
     Dates: start: 20111206, end: 20120314

REACTIONS (2)
  - NEUROPATHY PERIPHERAL [None]
  - MUSCULOSKELETAL PAIN [None]
